FAERS Safety Report 9206980 (Version 1)
Quarter: 2013Q2

REPORT INFORMATION
  Report Type: Spontaneous
  Country: US (occurrence: None)
  Receive Date: 20130402
  Receipt Date: 20130402
  Transmission Date: 20140414
  Serious: Yes (Hospitalization)
  Sender: FDA-Public Use
  Company Number: None

PATIENT
  Age: 64 Year
  Sex: Female
  Weight: 81 kg

DRUGS (3)
  1. PACLITAXEL (TAXOL) [Suspect]
  2. IFOSFAMIDE [Suspect]
  3. PEGFILGRASTIM (NEULASTA) [Suspect]

REACTIONS (14)
  - Abdominal pain [None]
  - Nausea [None]
  - Vomiting [None]
  - White blood cell count increased [None]
  - Platelet count decreased [None]
  - Vomiting [None]
  - Tachycardia [None]
  - Tachypnoea [None]
  - Hypertension [None]
  - Hypoxia [None]
  - Body temperature increased [None]
  - Mental status changes [None]
  - Lethargy [None]
  - Pneumonia aspiration [None]
